FAERS Safety Report 8611103-X (Version None)
Quarter: 2012Q3

REPORT INFORMATION
  Report Type: 
  Country: None (occurrence: None)
  Receive Date: 20120808
  Receipt Date: 20120801
  Transmission Date: 20120928
  Serious: Yes (Life-Threatening, Hospitalization, Other)
  Sender: FDA-Public Use
  Company Number: MC201200488

PATIENT
  Age: 52 Year
  Sex: Male
  Weight: 78.4 kg

DRUGS (4)
  1. ANGIOMAX [Suspect]
     Indication: PERCUTANEOUS CORONARY INTERVENTION
     Dosage: 12 ML, BOLUS, INTRAVENOUS, 28 ML/HR, INTRAVENOUS
     Route: 040
     Dates: start: 20120801, end: 20120801
  2. ANGIOMAX [Suspect]
     Indication: PERCUTANEOUS CORONARY INTERVENTION
     Dosage: 12 ML, BOLUS, INTRAVENOUS, 28 ML/HR, INTRAVENOUS
     Route: 040
     Dates: start: 20120801
  3. CONTRAST MEDIA [Suspect]
     Dates: start: 20120801, end: 20120801
  4. ADENOSINE [Suspect]
     Indication: ARTERIAL THERAPEUTIC PROCEDURE
     Dates: start: 20120801, end: 20120801

REACTIONS (2)
  - HYPERSENSITIVITY [None]
  - RESPIRATORY DEPRESSION [None]
